FAERS Safety Report 13588133 (Version 2)
Quarter: 2017Q2

REPORT INFORMATION
  Report Type: Spontaneous
  Country: US (occurrence: US)
  Receive Date: 20170528
  Receipt Date: 20170602
  Transmission Date: 20170830
  Serious: Yes (Other)
  Sender: FDA-Public Use
  Company Number: US-ELI_LILLY_AND_COMPANY-US201705008343

PATIENT
  Sex: Female

DRUGS (2)
  1. CYMBALTA [Suspect]
     Active Substance: DULOXETINE HYDROCHLORIDE
     Indication: PAIN
     Dosage: 60 MG, DAILY
     Route: 048
     Dates: start: 2011
  2. CYMBALTA [Suspect]
     Active Substance: DULOXETINE HYDROCHLORIDE
     Indication: NEURALGIA

REACTIONS (13)
  - Supraventricular tachycardia [Not Recovered/Not Resolved]
  - Bladder spasm [Not Recovered/Not Resolved]
  - Off label use [Unknown]
  - Agitation [Unknown]
  - Disturbance in attention [Not Recovered/Not Resolved]
  - Chest pain [Not Recovered/Not Resolved]
  - Hyperhidrosis [Unknown]
  - Atrial tachycardia [Not Recovered/Not Resolved]
  - Incontinence [Not Recovered/Not Resolved]
  - Vascular resistance systemic [Unknown]
  - Blister [Unknown]
  - Orthostatic hypotension [Unknown]
  - Skin exfoliation [Unknown]
